FAERS Safety Report 13774104 (Version 1)
Quarter: 2017Q3

REPORT INFORMATION
  Report Type: Spontaneous
  Country: GB (occurrence: GB)
  Receive Date: 20170720
  Receipt Date: 20170720
  Transmission Date: 20171127
  Serious: Yes (Other)
  Sender: FDA-Public Use
  Company Number: GB-PFIZER INC-1575654

PATIENT
  Age: 68 Year
  Sex: Female

DRUGS (5)
  1. RISEDRONATE SODIUM. [Suspect]
     Active Substance: RISEDRONATE SODIUM
     Indication: OSTEOPOROSIS PROPHYLAXIS
     Dosage: 35 MG, FREQ: 1 WEEK, INTERVAL: 1
     Route: 048
     Dates: start: 20121213
  2. PLAQUENIL /00072602/ [Suspect]
     Active Substance: HYDROXYCHLOROQUINE DIPHOSPHATE
     Indication: RHEUMATOID ARTHRITIS
     Dosage: 200 MG, STRENGTH: 200 MG, FREQ: 1 DAY, INTERVAL: 1
     Route: 048
     Dates: start: 20121213
  3. METHOTREXATE SODIUM. [Suspect]
     Active Substance: METHOTREXATE SODIUM
     Indication: RHEUMATOID ARTHRITIS
     Dosage: 15 MG, FREQ: 1 WEEK, INTERVAL :1
     Route: 048
     Dates: start: 20121213
  4. FOLIC ACID. [Concomitant]
     Active Substance: FOLIC ACID
     Indication: RHEUMATOID ARTHRITIS
     Dosage: 5 MG, FREQ: 1 WEEK, INTERVAL: 1
     Route: 048
     Dates: start: 20121213
  5. PREDNISOLONE. [Concomitant]
     Active Substance: PREDNISOLONE
     Indication: RHEUMATOID ARTHRITIS
     Dosage: 10 MG, FREQ: 1 DAY, INTERVAL: 1
     Route: 048
     Dates: start: 20121213

REACTIONS (2)
  - Oesophageal spasm [Recovered/Resolved]
  - Anaphylactic reaction [Recovered/Resolved]
